FAERS Safety Report 11719432 (Version 2)
Quarter: 2015Q4

REPORT INFORMATION
  Report Type: Spontaneous
  Country: FR (occurrence: FR)
  Receive Date: 20151110
  Receipt Date: 20151113
  Transmission Date: 20160304
  Serious: Yes (Hospitalization)
  Sender: FDA-Public Use
  Company Number: FR-PFIZER INC-2015377236

PATIENT
  Age: 69 Year
  Sex: Female

DRUGS (11)
  1. SECTRAL [Concomitant]
     Active Substance: ACEBUTOLOL HYDROCHLORIDE
     Dosage: UNK
     Dates: end: 201506
  2. OMEPRAZOLE. [Concomitant]
     Active Substance: OMEPRAZOLE
     Dosage: UNK
     Dates: end: 201506
  3. ROVAMYCINE [Suspect]
     Active Substance: SPIRAMYCIN
     Dosage: 3 MILLION IU, 3X/DAY
     Route: 048
     Dates: start: 20150623, end: 20150702
  4. CIPROFLOXACIN. [Suspect]
     Active Substance: CIPROFLOXACIN
     Dosage: 1 G, 2X/DAY
     Route: 048
     Dates: start: 20150630, end: 20150702
  5. INEXIUM [Concomitant]
     Active Substance: ESOMEPRAZOLE
     Dosage: UNK
     Dates: start: 201508
  6. RAMIPRIL. [Suspect]
     Active Substance: RAMIPRIL
     Dosage: 1.25 MG, DAILY
     Route: 048
     Dates: start: 20150630, end: 20150708
  7. LASILIX [Suspect]
     Active Substance: FUROSEMIDE
     Dosage: 40 MG, DAILY
     Route: 048
     Dates: start: 20150624, end: 20150708
  8. LOVENOX [Concomitant]
     Active Substance: ENOXAPARIN SODIUM
     Dosage: UNK
  9. RENUTRYL [Concomitant]
     Dosage: UNK
  10. INSPRA [Suspect]
     Active Substance: EPLERENONE
     Indication: CARDIAC FAILURE
     Dosage: 25 MG, DAILY
     Route: 048
     Dates: start: 20150630, end: 20150708
  11. CARDENSIEL [Concomitant]
     Active Substance: BISOPROLOL FUMARATE
     Dosage: UNK
     Dates: start: 201508

REACTIONS (1)
  - Nephritis [Recovered/Resolved with Sequelae]

NARRATIVE: CASE EVENT DATE: 20150707
